FAERS Safety Report 4661361-1 (Version None)
Quarter: 2005Q2

REPORT INFORMATION
  Report Type: 
  Country: None (occurrence: None)
  Receive Date: 20050427
  Receipt Date: 20050406
  Transmission Date: 20051028
  Serious: No
  Sender: FDA-Public Use
  Company Number: 212714

PATIENT
  Age: 43 Year
  Sex: Female

DRUGS (1)
  1. XOLAIR [Suspect]
     Indication: ASTHMA
     Dates: start: 20050131

REACTIONS (2)
  - ARTHRALGIA [None]
  - INFLUENZA LIKE ILLNESS [None]
